FAERS Safety Report 4830298-7 (Version None)
Quarter: 2005Q4

REPORT INFORMATION
  Report Type: 
  Country: None (occurrence: None)
  Receive Date: 20051114
  Receipt Date: 20051107
  Transmission Date: 20060501
  Serious: Yes (Other)
  Sender: FDA-Public Use
  Company Number: USA040669803

PATIENT
  Age: 89 Year
  Sex: Female
  Weight: 48 kg

DRUGS (3)
  1. FORTEO [Suspect]
     Indication: OSTEOPOROSIS
     Dosage: 20 UG DAY
     Dates: start: 20040524
  2. FOSAMAX [Concomitant]
  3. CALCIUM CARBONATE [Concomitant]

REACTIONS (7)
  - ARTHRALGIA [None]
  - BACK PAIN [None]
  - BREAST CANCER FEMALE [None]
  - BREAST CANCER IN SITU [None]
  - BUTTOCK PAIN [None]
  - FRACTURE [None]
  - PHARMACEUTICAL PRODUCT COMPLAINT [None]
